FAERS Safety Report 17125197 (Version 7)
Quarter: 2021Q1

REPORT INFORMATION
  Report Type: Report from Study
  Country: None (occurrence: US)
  Receive Date: 20191206
  Receipt Date: 20210223
  Transmission Date: 20210419
  Serious: Yes (Other)
  Sender: FDA-Public Use
  Company Number: US-ABBVIE-19K-163-3181440-00

PATIENT
  Age: 73 Year
  Sex: Female

DRUGS (8)
  1. VENCLEXTA [Suspect]
     Active Substance: VENETOCLAX
     Route: 048
     Dates: start: 20190517, end: 20191023
  2. VENCLEXTA [Suspect]
     Active Substance: VENETOCLAX
     Route: 048
     Dates: start: 20191024, end: 20200131
  3. VENCLEXTA [Suspect]
     Active Substance: VENETOCLAX
     Indication: PLASMA CELL MYELOMA
     Route: 048
     Dates: start: 201901, end: 2019
  4. VENCLEXTA [Suspect]
     Active Substance: VENETOCLAX
     Indication: BREAST CANCER FEMALE
     Route: 048
     Dates: start: 20190307, end: 20190310
  5. VENCLEXTA [Suspect]
     Active Substance: VENETOCLAX
     Route: 048
     Dates: start: 20190319, end: 20190516
  6. VENCLEXTA [Suspect]
     Active Substance: VENETOCLAX
     Route: 048
     Dates: start: 20190311, end: 20190314
  7. VENCLEXTA [Suspect]
     Active Substance: VENETOCLAX
     Route: 048
     Dates: start: 20200304
  8. VENCLEXTA [Suspect]
     Active Substance: VENETOCLAX
     Route: 048
     Dates: start: 20190315, end: 20190318

REACTIONS (3)
  - Off label use [Unknown]
  - Bronchitis [Recovering/Resolving]
  - Breast cancer female [Unknown]

NARRATIVE: CASE EVENT DATE: 2019
